FAERS Safety Report 4393751-9 (Version None)
Quarter: 2004Q3

REPORT INFORMATION
  Report Type: 
  Country: None (occurrence: None)
  Receive Date: 20040701
  Receipt Date: 20040617
  Transmission Date: 20050211
  Serious: Yes (Hospitalization)
  Sender: FDA-Public Use
  Company Number: 04P-056-0264139-00

PATIENT
  Age: 31 Year
  Sex: Male

DRUGS (2)
  1. DEPAKOTE [Suspect]
     Indication: SUICIDE ATTEMPT
     Dosage: 40 TO 50 TABLETS, ONCE, PER ORAL
     Route: 048
     Dates: start: 20040425, end: 20040425
  2. ETHANOL [Concomitant]

REACTIONS (6)
  - ALCOHOL USE [None]
  - COMA [None]
  - HYPOREFLEXIA [None]
  - HYPOTONIA [None]
  - INTENTIONAL OVERDOSE [None]
  - SUICIDE ATTEMPT [None]
